FAERS Safety Report 9750521 (Version 3)
Quarter: 2013Q4

REPORT INFORMATION
  Report Type: Spontaneous
  Country: FR (occurrence: FR)
  Receive Date: 20131212
  Receipt Date: 20131231
  Transmission Date: 20140711
  Serious: Yes (Life-Threatening)
  Sender: FDA-Public Use
  Company Number: FR-PFIZER INC-2013353138

PATIENT
  Age: 55 Year
  Sex: Female
  Weight: 59 kg

DRUGS (12)
  1. SOLU-MEDROL [Suspect]
     Indication: PREMEDICATION
     Dosage: UNK
     Route: 042
     Dates: end: 20130614
  2. METHOTREXATE SODIUM [Suspect]
     Dosage: 2.5 MG
  3. REMICADE [Suspect]
     Indication: CROHN^S DISEASE
     Dosage: 300 MG, EVERY 8 WEEKS
     Route: 042
  4. DIPROSONE [Suspect]
     Dosage: UNK
  5. TENSTATEN [Concomitant]
     Dosage: 50 MG
     Route: 048
  6. ADROVANCE [Concomitant]
     Dosage: 70 MG, DAILY
     Route: 048
  7. KARDEGIC [Concomitant]
     Dosage: 160 MG
     Route: 048
  8. SPECIAFOLDINE [Concomitant]
     Dosage: 5 MG
     Route: 048
  9. SIMVASTATIN [Concomitant]
     Dosage: 20 MG
     Route: 048
  10. SERTRALINE HYDROCHLORIDE [Concomitant]
     Dosage: 50 MG
     Route: 048
  11. LEVOTHYROX [Concomitant]
     Dosage: 50 UG
     Route: 048
  12. EUPANTOL [Concomitant]
     Dosage: 40 MG

REACTIONS (2)
  - Tracheobronchitis [Recovered/Resolved]
  - Sinusitis [Recovered/Resolved]
